FAERS Safety Report 5444010-4 (Version None)
Quarter: 2007Q3

REPORT INFORMATION
  Report Type: 
  Country: None (occurrence: None)
  Receive Date: 20070731
  Receipt Date: 20070618
  Transmission Date: 20080115
  Serious: No
  Sender: FDA-Public Use
  Company Number: US200706004122

PATIENT
  Age: 58 Year
  Sex: Female
  Weight: 70.3 kg

DRUGS (8)
  1. BYETTA [Suspect]
     Indication: TYPE 2 DIABETES MELLITUS
     Dosage: 5 UG, 2/D, SUBCUTANEOUS
     Route: 058
     Dates: start: 20070401
  2. LUNESTA [Concomitant]
  3. METFORMIN HCL [Concomitant]
  4. PROTONIX [Concomitant]
  5. ALTACE [Concomitant]
  6. PROVIGIL [Concomitant]
  7. MIRAPEX [Concomitant]
  8. LANTUS [Concomitant]

REACTIONS (3)
  - HUNGER [None]
  - POOR QUALITY SLEEP [None]
  - WEIGHT INCREASED [None]
